FAERS Safety Report 4766128-1 (Version None)
Quarter: 2005Q3

REPORT INFORMATION
  Report Type: 
  Country: None (occurrence: None)
  Receive Date: 20050912
  Receipt Date: 20050311
  Transmission Date: 20060218
  Serious: Yes (Hospitalization, Disabling)
  Sender: FDA-Public Use
  Company Number: US-MERCK-0503USA02591

PATIENT
  Age: 44 Year
  Sex: Female
  Weight: 75 kg

DRUGS (5)
  1. VIOXX [Suspect]
     Indication: BACK PAIN
     Route: 048
     Dates: start: 20000404, end: 20020401
  2. VIOXX [Suspect]
     Indication: SCOLIOSIS
     Route: 048
     Dates: start: 20000404, end: 20020401
  3. FIORICET TABLETS [Concomitant]
     Indication: MIGRAINE
     Route: 065
     Dates: start: 19760101
  4. ADVIL [Concomitant]
     Indication: MIGRAINE
     Route: 065
  5. TYLENOL [Concomitant]
     Indication: MIGRAINE
     Route: 065

REACTIONS (12)
  - BLOOD PRESSURE INCREASED [None]
  - CORONARY ARTERY DISEASE [None]
  - CORONARY ARTERY OCCLUSION [None]
  - FATIGUE [None]
  - HYPERLIPIDAEMIA [None]
  - MENOPAUSAL SYMPTOMS [None]
  - MITRAL VALVE INCOMPETENCE [None]
  - MYOCARDIAL INFARCTION [None]
  - OEDEMA PERIPHERAL [None]
  - SINUS TACHYCARDIA [None]
  - SYSTOLIC HYPERTENSION [None]
  - TOOTH DISORDER [None]
